FAERS Safety Report 19040277 (Version 1)
Quarter: 2021Q1

REPORT INFORMATION
  Report Type: Spontaneous
  Country: US (occurrence: US)
  Receive Date: 20210322
  Receipt Date: 20210322
  Transmission Date: 20210420
  Serious: No
  Sender: FDA-Public Use
  Company Number: US-BIOHAVEN PHARMACEUTICALS-2021BHV00077

PATIENT
  Age: 60 Year
  Sex: Female
  Weight: 44.44 kg

DRUGS (3)
  1. NURTEC ODT [Suspect]
     Active Substance: RIMEGEPANT SULFATE
     Indication: MIGRAINE
     Dosage: 75 MG, ONCE
     Route: 048
     Dates: start: 20210103, end: 20210103
  2. IBUPROFEN. [Concomitant]
     Active Substance: IBUPROFEN
     Dosage: 200 MG
  3. FLUTICASONE. [Concomitant]
     Active Substance: FLUTICASONE
     Dosage: UNK, AS NEEDED

REACTIONS (5)
  - Dizziness [Recovered/Resolved]
  - Retching [Recovered/Resolved]
  - Dysstasia [Recovered/Resolved]
  - Nausea [Recovered/Resolved]
  - Performance status decreased [Recovered/Resolved]

NARRATIVE: CASE EVENT DATE: 202101
